FAERS Safety Report 10019194 (Version 1)
Quarter: 2014Q1

REPORT INFORMATION
  Report Type: Spontaneous
  Country: US (occurrence: None)
  Receive Date: 20140314
  Receipt Date: 20140314
  Transmission Date: 20141002
  Serious: Yes (Disabling)
  Sender: FDA-Public Use
  Company Number: None

PATIENT
  Age: 49 Year
  Sex: Male
  Weight: 98.43 kg

DRUGS (1)
  1. DEXTROAMPHETAMINE [Suspect]
     Indication: ATTENTION DEFICIT/HYPERACTIVITY DISORDER
     Dosage: 1 CAPSULE AND 2 TABLETS PO Q AM+ BID AM+ PM ORAL
     Route: 048
     Dates: start: 20140122, end: 20140130

REACTIONS (3)
  - Drug ineffective [None]
  - Unevaluable event [None]
  - Sexual dysfunction [None]
